FAERS Safety Report 4474749-9 (Version None)
Quarter: 2004Q3

REPORT INFORMATION
  Report Type: 
  Country: None (occurrence: None)
  Receive Date: 20040923
  Receipt Date: 20040723
  Transmission Date: 20050211
  Serious: No
  Sender: FDA-Public Use
  Company Number: USA040671493

PATIENT
  Age: 65 Year
  Sex: Female
  Weight: 62 kg

DRUGS (8)
  1. FORTEO [Suspect]
     Indication: OSTEOPOROSIS
     Dates: start: 20040623, end: 20040720
  2. IMBRILON (INDOMETACIN) [Concomitant]
  3. METHOTREXATE [Concomitant]
  4. TOPROL-XL [Concomitant]
  5. VALIUM [Concomitant]
  6. EXTRA STRENGTH TYLENOL [Concomitant]
  7. CODEINE W/PARACEATAMOL [Concomitant]
  8. CALCIUM [Concomitant]

REACTIONS (5)
  - FATIGUE [None]
  - HEART RATE INCREASED [None]
  - INJECTION SITE BURNING [None]
  - INJECTION SITE ERYTHEMA [None]
  - PAIN IN EXTREMITY [None]
